FAERS Safety Report 21680118 (Version 3)
Quarter: 2024Q1

REPORT INFORMATION
  Report Type: Spontaneous
  Country: US (occurrence: US)
  Receive Date: 20221205
  Receipt Date: 20240130
  Transmission Date: 20240410
  Serious: Yes (Other)
  Sender: FDA-Public Use
  Company Number: US-GBT-018036

PATIENT
  Age: 55 Year
  Sex: Female
  Weight: 52.045 kg

DRUGS (1)
  1. OXBRYTA [Suspect]
     Active Substance: VOXELOTOR
     Indication: Sickle cell disease
     Dosage: 1500 MG, 1X/DAY
     Route: 048
     Dates: start: 20211002

REACTIONS (16)
  - Sickle cell anaemia with crisis [Recovered/Resolved]
  - Sickle cell anaemia with crisis [Recovered/Resolved]
  - Pain in extremity [Unknown]
  - Burning sensation [Unknown]
  - Muscle spasms [Unknown]
  - Muscle spasms [Unknown]
  - Gait inability [Unknown]
  - Depression [Unknown]
  - Vertigo [Recovering/Resolving]
  - Loss of personal independence in daily activities [Unknown]
  - Dizziness [Unknown]
  - Sinus disorder [Unknown]
  - Decreased appetite [Unknown]
  - Blood potassium decreased [Unknown]
  - Blood magnesium decreased [Unknown]
  - Memory impairment [Unknown]

NARRATIVE: CASE EVENT DATE: 20221101
